FAERS Safety Report 19578096 (Version 1)
Quarter: 2021Q3

REPORT INFORMATION
  Report Type: Spontaneous
  Country: FR (occurrence: FR)
  Receive Date: 20210719
  Receipt Date: 20210719
  Transmission Date: 20211014
  Serious: Yes (Other)
  Sender: FDA-Public Use
  Company Number: FR-AMGEN-FRASP2021109049

PATIENT
  Age: 55 Year
  Sex: Female

DRUGS (5)
  1. MVASI [Suspect]
     Active Substance: BEVACIZUMAB-AWWB
     Indication: NON-SMALL CELL LUNG CANCER
     Dosage: 625 MILLIGRAM (1 OF CYCLE OF 21 DAYS)
     Route: 042
     Dates: start: 20200910, end: 20200910
  2. ATEZOLIZUMAB. [Suspect]
     Active Substance: ATEZOLIZUMAB
     Indication: NON-SMALL CELL LUNG CANCER
     Dosage: 1200 MILLIGRAM (1 OF CYCLE OF 21 DAYS)
     Route: 042
     Dates: start: 20200910, end: 20200910
  3. PEMETREXED. [Concomitant]
     Active Substance: PEMETREXED
     Indication: NON-SMALL CELL LUNG CANCER
     Dosage: 650 MILLIGRAM (EVERY 1 CYCLE(S) DAY 1 OF CYCLE OF 21 DAYS)
     Route: 042
     Dates: start: 20200910, end: 20200910
  4. CARBOPLATIN. [Concomitant]
     Active Substance: CARBOPLATIN
     Indication: NON-SMALL CELL LUNG CANCER
     Dosage: 430 MILLIGRAM (EVERY 1 CYCLE(S) DAY 1 OF CYCLE OF 21 DAYS)
     Route: 042
     Dates: start: 20200910, end: 20200910
  5. LEVOTHYROX [Concomitant]
     Active Substance: LEVOTHYROXINE
     Dates: start: 20201102

REACTIONS (2)
  - Thyroid disorder [Recovered/Resolved]
  - Impaired healing [Recovered/Resolved]

NARRATIVE: CASE EVENT DATE: 20201001
